FAERS Safety Report 8829315 (Version 1)
Quarter: 2012Q4

REPORT INFORMATION
  Report Type: 
  Country: US (occurrence: US)
  Receive Date: 20121008
  Receipt Date: 20121008
  Transmission Date: 20130627
  Serious: Yes (Hospitalization)
  Sender: FDA-Public Use
  Company Number: US-ROCHE-1137670

PATIENT
  Age: 70 Year
  Sex: Male

DRUGS (6)
  1. RITUXAN [Suspect]
     Indication: CHRONIC LYMPHOCYTIC LEUKAEMIA
     Route: 065
     Dates: start: 20001117
  2. COUMADIN [Concomitant]
     Route: 065
  3. DILANTIN [Concomitant]
     Route: 065
  4. DILANTIN [Concomitant]
     Route: 065
  5. BENADRYL [Concomitant]
  6. LOVENOX [Concomitant]

REACTIONS (4)
  - Deep vein thrombosis [Unknown]
  - Pulmonary embolism [Unknown]
  - Chills [Recovered/Resolved]
  - Oedema peripheral [Unknown]
